FAERS Safety Report 8482493-6 (Version None)
Quarter: 2012Q3

REPORT INFORMATION
  Report Type: 
  Country: None (occurrence: None)
  Receive Date: 20120702
  Receipt Date: 20120621
  Transmission Date: 20120928
  Serious: Yes (Other)
  Sender: FDA-Public Use
  Company Number: CHPA2012FR013420

PATIENT
  Sex: Female

DRUGS (1)
  1. SCOPOLAMINE [Suspect]
     Indication: BRONCHIAL OBSTRUCTION
     Dosage: 1 DF, ONCE/SINGLE
     Route: 062
     Dates: start: 20120516, end: 20120517

REACTIONS (6)
  - SPEECH DISORDER [None]
  - OFF LABEL USE [None]
  - ALTERED STATE OF CONSCIOUSNESS [None]
  - CONFUSIONAL STATE [None]
  - MYDRIASIS [None]
  - ERYTHEMA [None]
